FAERS Safety Report 14781928 (Version 3)
Quarter: 2022Q3

REPORT INFORMATION
  Report Type: Spontaneous
  Country: US (occurrence: US)
  Receive Date: 20180420
  Receipt Date: 20220705
  Transmission Date: 20221027
  Serious: Yes (Other)
  Sender: FDA-Public Use
  Company Number: US-BIOGEN-2018BI00559025

PATIENT
  Sex: Female

DRUGS (9)
  1. TYSABRI [Suspect]
     Active Substance: NATALIZUMAB
     Indication: Multiple sclerosis
     Route: 050
     Dates: start: 20171005, end: 20180327
  2. LOSARTAN [Concomitant]
     Active Substance: LOSARTAN
     Indication: Product used for unknown indication
     Route: 050
  3. TRAMADOL [Concomitant]
     Active Substance: TRAMADOL
     Indication: Product used for unknown indication
     Route: 050
  4. AMLODIPINE [Concomitant]
     Active Substance: AMLODIPINE BESYLATE
     Indication: Product used for unknown indication
     Route: 050
  5. VITAMIN D NOS [Concomitant]
     Active Substance: VITAMIN D NOS
     Indication: Product used for unknown indication
     Route: 050
  6. AUBAGIO [Concomitant]
     Active Substance: TERIFLUNOMIDE
     Indication: Multiple sclerosis
     Route: 050
     Dates: start: 20150228, end: 20170901
  7. AUBAGIO [Concomitant]
     Active Substance: TERIFLUNOMIDE
     Route: 050
     Dates: start: 20180228, end: 2018
  8. AUBAGIO [Concomitant]
     Active Substance: TERIFLUNOMIDE
     Route: 050
     Dates: start: 201807, end: 2018
  9. AUBAGIO [Concomitant]
     Active Substance: TERIFLUNOMIDE
     Route: 050
     Dates: start: 20180806

REACTIONS (8)
  - Multiple sclerosis [Not Recovered/Not Resolved]
  - Red blood cell nucleated morphology present [Recovered/Resolved]
  - Hypokinesia [Not Recovered/Not Resolved]
  - Laboratory test abnormal [Unknown]
  - Red blood cell count decreased [Unknown]
  - Intervertebral disc protrusion [Unknown]
  - Diarrhoea [Not Recovered/Not Resolved]
  - Pruritus [Not Recovered/Not Resolved]

NARRATIVE: CASE EVENT DATE: 20170101
